FAERS Safety Report 23070419 (Version 7)
Quarter: 2025Q2

REPORT INFORMATION
  Report Type: Spontaneous
  Country: US (occurrence: US)
  Receive Date: 20231016
  Receipt Date: 20250423
  Transmission Date: 20250716
  Serious: Yes (Other)
  Sender: PFIZER
  Company Number: US-PFIZER INC-202300323567

PATIENT
  Age: 76 Year
  Sex: Female
  Weight: 69.4 kg

DRUGS (16)
  1. XELJANZ XR [Suspect]
     Active Substance: TOFACITINIB CITRATE
     Indication: Rheumatoid arthritis
     Dosage: 11 MG, 1X/DAY (TAKE 1 TABLET BY MOUTH DAILY)
     Route: 048
  2. XELJANZ XR [Suspect]
     Active Substance: TOFACITINIB CITRATE
     Dosage: 11 MG, 1X/DAY (TOOK IT ONCE PER DAY BY MOUTH)
     Route: 048
  3. DOXYCYCLINE [Concomitant]
     Active Substance: DOXYCYCLINE
     Dosage: 50 MG, DAILY
  4. FOSAMAX [Concomitant]
     Active Substance: ALENDRONATE SODIUM
  5. LEXAPRO [Concomitant]
     Active Substance: ESCITALOPRAM OXALATE
  6. OMEPRAZOLE [Concomitant]
     Active Substance: OMEPRAZOLE
  7. RESTASIS [Concomitant]
     Active Substance: CYCLOSPORINE
     Dosage: INSTILL 1 DROP BY OPHTHALMIC ROUTE EVERY 12 HOURS INTO BOTH EYES
     Route: 047
  8. ROSUVASTATIN [Concomitant]
     Active Substance: ROSUVASTATIN
  9. TYLENOL [Concomitant]
     Active Substance: ACETAMINOPHEN
  10. WELLBUTRIN [Concomitant]
     Active Substance: BUPROPION HYDROCHLORIDE
  11. ALENDRONATE [Concomitant]
     Active Substance: ALENDRONATE SODIUM
     Dosage: 70 MG, DAILY
  12. BUPROPION [Concomitant]
     Active Substance: BUPROPION
     Dosage: 150 MG, 1X/DAY
  13. LOSARTAN [Concomitant]
     Active Substance: LOSARTAN
     Dosage: 100 MG, 1X/DAY
  14. FISH OIL [Concomitant]
     Active Substance: FISH OIL
  15. LEVOSULPIRIDE [Concomitant]
     Active Substance: LEVOSULPIRIDE
  16. MINERALS\VITAMINS [Concomitant]
     Active Substance: MINERALS\VITAMINS
     Indication: Prophylaxis

REACTIONS (8)
  - Rheumatoid arthritis [Recovering/Resolving]
  - Neuropathy peripheral [Unknown]
  - Cerebrovascular accident [Unknown]
  - Herpes zoster [Unknown]
  - Dry eye [Unknown]
  - Dry mouth [Unknown]
  - Arthropathy [Unknown]
  - Visual field defect [Unknown]

NARRATIVE: CASE EVENT DATE: 20221101
